FAERS Safety Report 8215990-9 (Version None)
Quarter: 2012Q1

REPORT INFORMATION
  Report Type: 
  Country: None (occurrence: None)
  Receive Date: 20120316
  Receipt Date: 20120301
  Transmission Date: 20120608
  Serious: No
  Sender: FDA-Public Use
  Company Number: US-PFIZER INC-2012052701

PATIENT
  Sex: Female

DRUGS (7)
  1. VISTARIL [Suspect]
     Indication: TREMOR
  2. VISTARIL [Suspect]
     Indication: RESTLESSNESS
  3. NEURONTIN [Concomitant]
     Indication: NEUROPATHY PERIPHERAL
     Dosage: 600 MG, UNK
  4. VISTARIL [Suspect]
     Indication: ANXIETY
     Dosage: 50 MG, 2X/DAY
     Dates: start: 20120201
  5. CHANTIX [Suspect]
     Indication: SMOKING CESSATION THERAPY
     Dosage: 0.5 MG, 1X/DAY
     Route: 048
     Dates: start: 20120201, end: 20120229
  6. SEROQUEL [Concomitant]
     Indication: INSOMNIA
  7. BUSPAR [Concomitant]
     Indication: DEPRESSION
     Dosage: 30 MG, UNK

REACTIONS (6)
  - RESTLESSNESS [None]
  - ANXIETY [None]
  - DRUG INEFFECTIVE [None]
  - TREMOR [None]
  - FALL [None]
  - URTICARIA [None]
